FAERS Safety Report 17938913 (Version 1)
Quarter: 2020Q2

REPORT INFORMATION
  Report Type: Spontaneous
  Country: AU (occurrence: AU)
  Receive Date: 20200625
  Receipt Date: 20200625
  Transmission Date: 20200714
  Serious: Yes (Other)
  Sender: FDA-Public Use
  Company Number: AU-CHEPLA-MYERS SQUIBB COMPANY-BMS-2019-048726

PATIENT
  Age: 13 Year
  Sex: Male

DRUGS (12)
  1. CYTARABINE. [Suspect]
     Active Substance: CYTARABINE
     Indication: ANAPLASTIC LARGE CELL LYMPHOMA T- AND NULL-CELL TYPES STAGE I
     Dosage: 150 MILLIGRAM/SQ. METER, INTERVAL: 1 CYCLICAL
     Route: 065
  2. CYCLOPHOSPHAMIDE. [Suspect]
     Active Substance: CYCLOPHOSPHAMIDE
     Indication: ANAPLASTIC LARGE CELL LYMPHOMA T- AND NULL-CELL TYPES STAGE I
     Dosage: 200 MILLIGRAM/SQ. METER, INTERVAL: 1 CYCLICAL
     Route: 065
  3. METHOTREXATE. [Suspect]
     Active Substance: METHOTREXATE
     Indication: ANAPLASTIC LARGE CELL LYMPHOMA T- AND NULL-CELL TYPES STAGE I
     Route: 065
  4. CYTARABINE. [Suspect]
     Active Substance: CYTARABINE
     Indication: ALK GENE REARRANGEMENT POSITIVE
     Dosage: 30 MILLIGRAM, INTERVAL: 1 CYCLICAL
     Route: 037
  5. METHOTREXATE. [Suspect]
     Active Substance: METHOTREXATE
     Indication: ALK GENE REARRANGEMENT POSITIVE
     Dosage: 12 MILLIGRAM, INTERVAL: 1 CYCLICAL
     Route: 037
  6. ETOPOPHOS [Suspect]
     Active Substance: ETOPOSIDE PHOSPHATE
     Indication: ALK GENE REARRANGEMENT POSITIVE
     Dosage: 100 MILLIGRAM/SQ. METER, INTERVAL: 1 CYCLICAL
     Route: 065
  7. IFOSFAMIDE. [Suspect]
     Active Substance: IFOSFAMIDE
     Indication: ALK GENE REARRANGEMENT POSITIVE
     Dosage: 800 MILLIGRAM/SQ. METER, INTERVAL: 1 CYCLICAL
     Route: 065
  8. CYCLOPHOSPHAMIDE. [Suspect]
     Active Substance: CYCLOPHOSPHAMIDE
     Indication: ALK GENE REARRANGEMENT POSITIVE
     Route: 065
  9. HYDROCORTISONE. [Suspect]
     Active Substance: HYDROCORTISONE
     Indication: ALK GENE REARRANGEMENT POSITIVE
     Dosage: 15 MILLIGRAM, INTERVAL: 1 CYCLICAL
     Route: 037
  10. DEXAMETHASONE SODIUM PHOSPHATE. [Suspect]
     Active Substance: DEXAMETHASONE SODIUM PHOSPHATE
     Indication: ALK GENE REARRANGEMENT POSITIVE
     Dosage: 10 MILLIGRAM/SQ. METER, INTERVAL: 1 CYCLICAL
     Route: 065
  11. DEXAMETHASONE SODIUM PHOSPHATE. [Suspect]
     Active Substance: DEXAMETHASONE SODIUM PHOSPHATE
     Indication: ANAPLASTIC LARGE CELL LYMPHOMA T- AND NULL-CELL TYPES STAGE I
     Dosage: 5 MILLIGRAM/SQ. METER, INTERVAL: 1 CYCLICAL
     Route: 065
  12. DOXORUBICIN HYDROCHLORIDE. [Suspect]
     Active Substance: DOXORUBICIN HYDROCHLORIDE
     Indication: ALK GENE REARRANGEMENT POSITIVE
     Dosage: 25 MILLIGRAM/SQ. METER, INTERVAL: 1 CYCLICAL
     Route: 065

REACTIONS (2)
  - Duodenal ulcer [Recovered/Resolved]
  - Product use issue [Unknown]
